FAERS Safety Report 8920345 (Version 1)
Quarter: 2012Q4

REPORT INFORMATION
  Report Type: 
  Country: FR (occurrence: FR)
  Receive Date: 20121122
  Receipt Date: 20121122
  Transmission Date: 20130627
  Serious: Yes (Other)
  Sender: FDA-Public Use
  Company Number: FR-JNJFOC-20121109514

PATIENT
  Age: 76 Year
  Sex: Male
  Weight: 77 kg

DRUGS (8)
  1. XARELTO [Suspect]
     Indication: THROMBOSIS PROPHYLAXIS
     Dosage: Duration of drug administration: 36 days
     Route: 048
     Dates: start: 20110117, end: 20110221
  2. XARELTO [Suspect]
     Indication: HIP ARTHROPLASTY
     Dosage: Duration of drug administration: 36 days
     Route: 048
     Dates: start: 20110117, end: 20110221
  3. CLOPIDOGREL [Suspect]
     Indication: PRODUCT USED FOR UNKNOWN INDICATION
     Dates: start: 2008
  4. MOTILIUM [Concomitant]
  5. DAFALGAN [Concomitant]
     Indication: PAIN
     Route: 065
  6. LAMALINE [Concomitant]
  7. SOTALEX [Concomitant]
     Indication: EXTRASYSTOLES
     Route: 048
     Dates: start: 2008
  8. PRAVASTATIN [Concomitant]

REACTIONS (5)
  - Gastrooesophageal reflux disease [Recovered/Resolved]
  - Abdominal pain upper [Recovering/Resolving]
  - Weight decreased [Recovering/Resolving]
  - Diarrhoea [Unknown]
  - Asthenia [Unknown]
